FAERS Safety Report 5699159-8 (Version None)
Quarter: 2008Q2

REPORT INFORMATION
  Report Type: 
  Country: None (occurrence: None)
  Receive Date: 20080407
  Receipt Date: 20080407
  Transmission Date: 20081010
  Serious: Yes (Other)
  Sender: FDA-Public Use
  Company Number: None

PATIENT
  Age: 10 Year
  Sex: Female
  Weight: 28.123 kg

DRUGS (2)
  1. SINGULAIR [Suspect]
     Indication: ASTHMA
     Dosage: 5MG
     Dates: start: 20070107, end: 20080403
  2. SINGULAIR [Suspect]
     Indication: HYPERSENSITIVITY
     Dosage: 5MG
     Dates: start: 20070107, end: 20080403

REACTIONS (6)
  - ANXIETY [None]
  - HEART RATE INCREASED [None]
  - HYPERHIDROSIS [None]
  - PALPITATIONS [None]
  - PANIC ATTACK [None]
  - RESPIRATORY RATE INCREASED [None]
